FAERS Safety Report 5339005-5 (Version None)
Quarter: 2007Q2

REPORT INFORMATION
  Report Type: 
  Country: None (occurrence: None)
  Receive Date: 20070530
  Receipt Date: 20070521
  Transmission Date: 20071010
  Serious: Yes (Death, Life-Threatening)
  Sender: FDA-Public Use
  Company Number: FR-PFIZER INC-2007023688

PATIENT
  Sex: Male

DRUGS (9)
  1. LYRICA [Suspect]
     Indication: NEURALGIA
     Dosage: DAILY DOSE:600MG
     Route: 048
     Dates: start: 20061218, end: 20070314
  2. TROSPIUM CHLORIDE [Suspect]
     Dosage: DAILY DOSE:40MG
     Route: 048
  3. HYDROXYZINE HYDROCHLORIDE [Suspect]
     Dosage: DAILY DOSE:25MG
     Route: 048
  4. BACLOFEN [Suspect]
     Dosage: DAILY DOSE:50MG
     Route: 048
  5. TRAMADOL HCL [Suspect]
  6. CLOMIPRAMINE HCL [Suspect]
     Dosage: DAILY DOSE:100MG
     Route: 048
  7. ALL OTHER THERAPEUTIC PRODUCTS [Concomitant]
  8. ESOMEPRAZOLE MAGNESIUM [Concomitant]
     Route: 048
  9. CLONAZEPAM [Concomitant]
     Route: 048

REACTIONS (2)
  - CARDIAC ARREST [None]
  - PULMONARY EMBOLISM [None]
